FAERS Safety Report 17539945 (Version 1)
Quarter: 2020Q1

REPORT INFORMATION
  Report Type: Spontaneous
  Country: ES (occurrence: ES)
  Receive Date: 20200313
  Receipt Date: 20200313
  Transmission Date: 20200409
  Serious: Yes (Life-Threatening, Other)
  Sender: FDA-Public Use
  Company Number: ES-TEVA-2020-ES-1198317

PATIENT
  Age: 49 Year
  Sex: Female

DRUGS (2)
  1. ENALAPRIL 20MG [Suspect]
     Active Substance: ENALAPRIL
     Dosage: 1 COMPR AL D?A
     Dates: start: 20191121, end: 20200222
  2. ENALAPRIL 20MG [Suspect]
     Active Substance: ENALAPRIL
     Indication: HYPERTENSION
     Dosage: 1 COMP/DAY 20 MG
     Route: 065
     Dates: start: 20200224, end: 20200227

REACTIONS (1)
  - Headache [Recovered/Resolved]

NARRATIVE: CASE EVENT DATE: 20191125
